FAERS Safety Report 26014943 (Version 3)
Quarter: 2025Q4

REPORT INFORMATION
  Report Type: Report from Study
  Country: US (occurrence: US)
  Receive Date: 20251108
  Receipt Date: 20251126
  Transmission Date: 20260118
  Serious: No
  Sender: DECIPHERA PHARMACEUTICALS
  Company Number: US-DECIPHERA PHARMACEUTICALS LLC-2025US001341

PATIENT
  Age: 42 Year
  Sex: Male

DRUGS (3)
  1. ROMVIMZA [Suspect]
     Active Substance: VIMSELTINIB
     Indication: Malignant connective tissue neoplasm
     Dosage: 30 MILLIGRAM, TWICE WEEKLY, 72 HOURS APART (MONDAY AND THURSDAY)
     Dates: start: 20250410
  2. ROMVIMZA [Suspect]
     Active Substance: VIMSELTINIB
     Indication: Soft tissue sarcoma
  3. ROMVIMZA [Suspect]
     Active Substance: VIMSELTINIB
     Indication: Giant cell tumour of tendon sheath

REACTIONS (3)
  - Gingival swelling [Unknown]
  - Gingival recession [Unknown]
  - Fatigue [Unknown]

NARRATIVE: CASE EVENT DATE: 20250101
